FAERS Safety Report 8758524 (Version 1)
Quarter: 2012Q4

REPORT INFORMATION
  Report Type: Spontaneous
  Country: US (occurrence: None)
  Receive Date: 20120828
  Receipt Date: 20120828
  Transmission Date: 20130627
  Serious: No
  Sender: FDA-Public Use
  Company Number: None

PATIENT
  Age: 71 Year
  Sex: Female
  Weight: 61.24 kg

DRUGS (1)
  1. IVANZ [Suspect]
     Indication: ABDOMINAL INFECTION
     Route: 042
     Dates: start: 20110825, end: 20110829

REACTIONS (1)
  - Hepatic enzyme increased [None]
